FAERS Safety Report 8251985-7 (Version None)
Quarter: 2012Q2

REPORT INFORMATION
  Report Type: 
  Country: None (occurrence: None)
  Receive Date: 20120402
  Receipt Date: 20120329
  Transmission Date: 20120825
  Serious: Yes (Death)
  Sender: FDA-Public Use
  Company Number: PHHY2012CO011920

PATIENT
  Age: 78 Year
  Sex: Male

DRUGS (3)
  1. ONDANSETRON [Concomitant]
  2. FLUOROURACIL [Suspect]
     Indication: RECTAL CANCER
     Dosage: 730 MG, QD
     Route: 042
     Dates: start: 20120130, end: 20120203
  3. FOLINATE [Concomitant]

REACTIONS (2)
  - DEATH [None]
  - MUCOSAL INFLAMMATION [None]
